FAERS Safety Report 14653376 (Version 1)
Quarter: 2018Q1

REPORT INFORMATION
  Report Type: Spontaneous
  Country: FR (occurrence: FR)
  Receive Date: 20180319
  Receipt Date: 20180319
  Transmission Date: 20180509
  Serious: Yes (Hospitalization)
  Sender: FDA-Public Use
  Company Number: FR-ROCHE-2089138

PATIENT
  Age: 77 Year
  Sex: Male
  Weight: 71 kg

DRUGS (15)
  1. BACTRIM [Suspect]
     Active Substance: SULFAMETHOXAZOLE\TRIMETHOPRIM
     Indication: PRODUCT USED FOR UNKNOWN INDICATION
     Route: 048
     Dates: start: 20171215, end: 20171219
  2. CARDENSIEL [Concomitant]
     Active Substance: BISOPROLOL FUMARATE
     Route: 048
  3. RYDAPT [Suspect]
     Active Substance: MIDOSTAURIN
     Indication: SYSTEMIC MASTOCYTOSIS
     Route: 048
     Dates: start: 20171107
  4. PIPERACILLINE [Suspect]
     Active Substance: PIPERACILLIN SODIUM
     Indication: PRODUCT USED FOR UNKNOWN INDICATION
     Dosage: REPORTED AS PIPERACILLINE BASE.
     Route: 042
     Dates: start: 20171214, end: 20171221
  5. PANTOPRAZOLE [Concomitant]
     Active Substance: PANTOPRAZOLE
     Route: 048
  6. EYLEA [Concomitant]
     Active Substance: AFLIBERCEPT
     Route: 031
  7. INFLUVAC [Suspect]
     Active Substance: INFLUENZA VIRUS VACCINE
     Indication: PRODUCT USED FOR UNKNOWN INDICATION
     Route: 058
     Dates: start: 20171124, end: 20171124
  8. TAMIFLU [Suspect]
     Active Substance: OSELTAMIVIR PHOSPHATE
     Indication: PRODUCT USED FOR UNKNOWN INDICATION
     Route: 048
     Dates: start: 20171214, end: 20171221
  9. TAZOBACTAM [Suspect]
     Active Substance: TAZOBACTAM
     Indication: PRODUCT USED FOR UNKNOWN INDICATION
     Route: 042
     Dates: start: 20171214, end: 20171221
  10. CETIRIZINE DIHYDROCHLORIDE [Concomitant]
     Active Substance: CETIRIZINE HYDROCHLORIDE
     Route: 048
     Dates: start: 20171104
  11. ZYVOXID [Suspect]
     Active Substance: LINEZOLID
     Indication: PRODUCT USED FOR UNKNOWN INDICATION
     Route: 042
     Dates: start: 20171214, end: 20171219
  12. RANITIDINE. [Concomitant]
     Active Substance: RANITIDINE
     Dosage: REPORTED AS RANITIDINE (CHLORHYDRATE DE).
     Route: 048
     Dates: start: 20171104
  13. NEORECORMON [Concomitant]
     Active Substance: ERYTHROPOIETIN
     Route: 058
     Dates: start: 20171214, end: 20171219
  14. CIFLOX (FRANCE) [Suspect]
     Active Substance: CIPROFLOXACIN
     Indication: PRODUCT USED FOR UNKNOWN INDICATION
     Route: 065
     Dates: start: 20171214, end: 20171219
  15. LOVENOX [Concomitant]
     Active Substance: ENOXAPARIN SODIUM
     Route: 058
     Dates: start: 20171104

REACTIONS (3)
  - Acute kidney injury [Not Recovered/Not Resolved]
  - Proteinuria [Not Recovered/Not Resolved]
  - Glomerulonephritis membranoproliferative [Not Recovered/Not Resolved]

NARRATIVE: CASE EVENT DATE: 20171217
